FAERS Safety Report 14239026 (Version 3)
Quarter: 2017Q4

REPORT INFORMATION
  Report Type: Spontaneous
  Country: US (occurrence: US)
  Receive Date: 20171130
  Receipt Date: 20171228
  Transmission Date: 20180321
  Serious: No
  Sender: FDA-Public Use
  Company Number: US-B.I. PHARMACEUTICALS,INC./RIDGEFIELD-2017-BI-063617

PATIENT
  Age: 2 Year
  Sex: Female

DRUGS (1)
  1. CATAPRES-TTS [Suspect]
     Active Substance: CLONIDINE
     Indication: SEDATION
     Dosage: STRENGTH: 2.5 MG(0.1MG/DAY)
     Route: 061
     Dates: start: 2016

REACTIONS (4)
  - Withdrawal syndrome [Recovered/Resolved]
  - Product quality issue [Unknown]
  - Off label use [Unknown]
  - Hypersomnia [Unknown]

NARRATIVE: CASE EVENT DATE: 2016
